FAERS Safety Report 20980277 (Version 1)
Quarter: 2022Q2

REPORT INFORMATION
  Report Type: Spontaneous
  Country: JP (occurrence: JP)
  Receive Date: 20220620
  Receipt Date: 20220620
  Transmission Date: 20220721
  Serious: Yes (Hospitalization)
  Sender: FDA-Public Use
  Company Number: JP-NOVARTISPH-NVSJ2022JP092344

PATIENT
  Sex: Female

DRUGS (1)
  1. AFINITOR [Suspect]
     Active Substance: EVEROLIMUS
     Indication: Breast cancer recurrent
     Dosage: 10 MG
     Route: 048

REACTIONS (3)
  - Stomatitis [Unknown]
  - Renal impairment [Unknown]
  - Hepatic function abnormal [Unknown]
